FAERS Safety Report 4715077-3 (Version None)
Quarter: 2005Q2

REPORT INFORMATION
  Report Type: 
  Country: None (occurrence: None)
  Receive Date: 20050630
  Receipt Date: 20050520
  Transmission Date: 20051028
  Serious: Yes (Hospitalization)
  Sender: FDA-Public Use
  Company Number: 212918

PATIENT
  Sex: Male

DRUGS (4)
  1. AVASTIN [Suspect]
     Route: 065
  2. 5-FU (FLUOROURACIL) [Concomitant]
  3. LEUCOVORIN CALCIUM [Concomitant]
  4. OXALIPLATIN (OXALIPLATIN) [Concomitant]

REACTIONS (1)
  - MYOCARDIAL INFARCTION [None]
